FAERS Safety Report 4761283-1 (Version None)
Quarter: 2005Q3

REPORT INFORMATION
  Report Type: 
  Country: None (occurrence: None)
  Receive Date: 20050906
  Receipt Date: 20050823
  Transmission Date: 20060218
  Serious: Yes (Death)
  Sender: FDA-Public Use
  Company Number: FR-JNJFOC-20050805236

PATIENT
  Age: 23 Year
  Sex: Male

DRUGS (2)
  1. EPITOMAX [Suspect]
     Indication: SUICIDE ATTEMPT
     Route: 048
  2. LAMICTAL [Suspect]
     Indication: SUICIDE ATTEMPT
     Route: 048

REACTIONS (9)
  - CARDIAC ARREST [None]
  - COMPLETED SUICIDE [None]
  - CYTOLYTIC HEPATITIS [None]
  - DISSEMINATED INTRAVASCULAR COAGULATION [None]
  - METABOLIC ACIDOSIS [None]
  - OVERDOSE [None]
  - RENAL FAILURE ACUTE [None]
  - SHOCK [None]
  - STATUS EPILEPTICUS [None]
